FAERS Safety Report 17356415 (Version 1)
Quarter: 2020Q1

REPORT INFORMATION
  Report Type: Spontaneous
  Country: FR (occurrence: FR)
  Receive Date: 20200131
  Receipt Date: 20200131
  Transmission Date: 20200409
  Serious: Yes (Hospitalization, Other)
  Sender: FDA-Public Use
  Company Number: FR-VALIDUS PHARMACEUTICALS LLC-FR-2020VAL000079

PATIENT

DRUGS (3)
  1. FUROSEMIDE. [Suspect]
     Active Substance: FUROSEMIDE
     Indication: ARRHYTHMIA
     Dosage: UNK (40 MG IN THE MORNING AND IF NOT FEELING WELL, THEN CAN TAKE 20 MG MORE IN THE EVENING)
     Route: 065
  2. L-THYROXIN HENNING [Suspect]
     Active Substance: LEVOTHYROXINE SODIUM
     Indication: PRODUCT USED FOR UNKNOWN INDICATION
     Dosage: 2 DF, QD (2 TABLETS IN THE MORNING ON AN EMPTY STOMACH)
     Route: 065
  3. IODINE. [Concomitant]
     Active Substance: IODINE
     Indication: ARRHYTHMIA
     Dosage: UNK

REACTIONS (5)
  - Insomnia [Not Recovered/Not Resolved]
  - Condition aggravated [Not Recovered/Not Resolved]
  - Respiratory distress [Not Recovered/Not Resolved]
  - Dyspnoea [Not Recovered/Not Resolved]
  - Off label use [Unknown]
